FAERS Safety Report 24348443 (Version 1)
Quarter: 2024Q3

REPORT INFORMATION
  Report Type: Spontaneous
  Country: IT (occurrence: IT)
  Receive Date: 20240923
  Receipt Date: 20240923
  Transmission Date: 20241016
  Serious: Yes (Hospitalization)
  Sender: Haleon PLC
  Company Number: IT-HALEON-2197254

PATIENT
  Age: 68 Year
  Sex: Female

DRUGS (3)
  1. VOLTAREN [Suspect]
     Active Substance: DICLOFENAC SODIUM
     Indication: Back pain
     Route: 048
     Dates: start: 20240820, end: 20240820
  2. BINOSTO (ALENDRONATE SODIUM) [Concomitant]
     Indication: Product used for unknown indication
  3. DILATREND (CARVEDILOL) [Concomitant]
     Indication: Product used for unknown indication

REACTIONS (1)
  - Anaphylactic reaction [Recovering/Resolving]

NARRATIVE: CASE EVENT DATE: 20240820
